FAERS Safety Report 18906697 (Version 2)
Quarter: 2021Q2

REPORT INFORMATION
  Report Type: Spontaneous
  Country: US (occurrence: US)
  Receive Date: 20210217
  Receipt Date: 20210414
  Transmission Date: 20210717
  Serious: No
  Sender: FDA-Public Use
  Company Number: US-PFIZER INC-2021138415

PATIENT
  Age: 49 Year
  Sex: Male

DRUGS (1)
  1. XELJANZ [Suspect]
     Active Substance: TOFACITINIB CITRATE
     Indication: RHEUMATOID ARTHRITIS
     Dosage: 5 MG, 2X/DAY
     Route: 048
     Dates: start: 20210106

REACTIONS (5)
  - Abdominal pain upper [Recovered/Resolved]
  - Depressed mood [Unknown]
  - Product dose omission in error [Unknown]
  - Diarrhoea [Recovered/Resolved]
  - Memory impairment [Unknown]
